FAERS Safety Report 24353926 (Version 1)
Quarter: 2024Q3

REPORT INFORMATION
  Report Type: Spontaneous
  Country: VN (occurrence: VN)
  Receive Date: 20240923
  Receipt Date: 20240923
  Transmission Date: 20241017
  Serious: Yes (Death, Hospitalization, Other)
  Sender: SANDOZ
  Company Number: VN-002147023-NVSC2024VN187016

PATIENT
  Age: 39 Year
  Sex: Male

DRUGS (6)
  1. CYCLOSPORINE [Suspect]
     Active Substance: CYCLOSPORINE
     Indication: Prophylaxis against graft versus host disease
     Dosage: UNK
     Route: 065
  2. CYCLOSPORINE [Suspect]
     Active Substance: CYCLOSPORINE
     Indication: Immunosuppressant drug therapy
  3. FLUDARABINE PHOSPHATE [Suspect]
     Active Substance: FLUDARABINE PHOSPHATE
     Indication: Prophylaxis against graft versus host disease
     Dosage: UNK
     Route: 065
  4. FLUDARABINE PHOSPHATE [Suspect]
     Active Substance: FLUDARABINE PHOSPHATE
     Indication: Immunosuppressant drug therapy
  5. MYCOPHENOLATE MOFETIL [Suspect]
     Active Substance: MYCOPHENOLATE MOFETIL
     Indication: Prophylaxis against graft versus host disease
     Dosage: UNK
     Route: 065
  6. MYCOPHENOLATE MOFETIL [Suspect]
     Active Substance: MYCOPHENOLATE MOFETIL
     Indication: Immunosuppressant drug therapy

REACTIONS (10)
  - Infection [Fatal]
  - Leukaemia recurrent [Unknown]
  - Granulocytopenia [Unknown]
  - VIth nerve paralysis [Unknown]
  - Stomatitis [Unknown]
  - Ear haemorrhage [Unknown]
  - Dysphagia [Unknown]
  - Swelling face [Unknown]
  - Decreased appetite [Unknown]
  - Pyrexia [Unknown]
